FAERS Safety Report 14762442 (Version 1)
Quarter: 2018Q2

REPORT INFORMATION
  Report Type: Spontaneous
  Country: US (occurrence: US)
  Receive Date: 20180416
  Receipt Date: 20180416
  Transmission Date: 20180711
  Serious: No
  Sender: FDA-Public Use
  Company Number: US-TEVA-2018-US-867025

PATIENT
  Age: 76 Year
  Sex: Female
  Weight: 49.89 kg

DRUGS (1)
  1. FEXOFENADINE [Suspect]
     Active Substance: FEXOFENADINE\FEXOFENADINE HYDROCHLORIDE
     Indication: HYPERSENSITIVITY
     Dosage: 180 MILLIGRAM DAILY;
     Route: 048
     Dates: start: 20180216, end: 20180219

REACTIONS (3)
  - Dizziness [Recovering/Resolving]
  - Drug administered to patient of inappropriate age [Unknown]
  - Headache [Recovering/Resolving]

NARRATIVE: CASE EVENT DATE: 20180216
